FAERS Safety Report 18584012 (Version 1)
Quarter: 2020Q4

REPORT INFORMATION
  Report Type: Spontaneous
  Country: US (occurrence: US)
  Receive Date: 20201207
  Receipt Date: 20201207
  Transmission Date: 20210114
  Serious: Yes (Hospitalization, Other)
  Sender: FDA-Public Use
  Company Number: US-AUROBINDO-AUR-APL-2020-057313

PATIENT
  Age: 20 Year
  Sex: Male

DRUGS (4)
  1. OXYCODONE [Suspect]
     Active Substance: OXYCODONE
     Indication: PAIN
     Dosage: UNK
     Route: 065
     Dates: start: 2016, end: 2019
  2. OXYCODONE [Suspect]
     Active Substance: OXYCODONE
     Dosage: UNK
     Route: 065
     Dates: start: 2017, end: 2019
  3. HYDROXYUREA. [Concomitant]
     Active Substance: HYDROXYUREA
     Indication: PAIN
     Dosage: UNK
     Route: 065
     Dates: start: 2016
  4. OXYCODONE [Suspect]
     Active Substance: OXYCODONE
     Dosage: UNK, TAPER
     Route: 065
     Dates: start: 2019, end: 2019

REACTIONS (7)
  - Myalgia [Unknown]
  - Withdrawal syndrome [Unknown]
  - Anxiety [Unknown]
  - Nausea [Unknown]
  - Toxicity to various agents [Unknown]
  - Hyperhidrosis [Unknown]
  - Headache [Unknown]

NARRATIVE: CASE EVENT DATE: 2019
